FAERS Safety Report 12695939 (Version 3)
Quarter: 2016Q4

REPORT INFORMATION
  Report Type: Spontaneous
  Country: US (occurrence: US)
  Receive Date: 20160829
  Receipt Date: 20161018
  Transmission Date: 20170207
  Serious: No
  Sender: FDA-Public Use
  Company Number: US-ACTELION-A-US2016-141307

PATIENT
  Age: 72 Year
  Sex: Female

DRUGS (19)
  1. UPTRAVI [Suspect]
     Active Substance: SELEXIPAG
     Indication: PRODUCT USED FOR UNKNOWN INDICATION
     Dosage: 1200 MCG, UNK
     Route: 048
     Dates: start: 20160808
  2. ASPIRIN. [Concomitant]
     Active Substance: ASPIRIN
  3. FLONASE [Concomitant]
     Active Substance: FLUTICASONE PROPIONATE
  4. UPTRAVI [Suspect]
     Active Substance: SELEXIPAG
     Dosage: 2400 MCG
     Route: 048
  5. PREDNISONE. [Concomitant]
     Active Substance: PREDNISONE
  6. RECLAST [Concomitant]
     Active Substance: ZOLEDRONIC ACID
  7. CRESTOR [Concomitant]
     Active Substance: ROSUVASTATIN CALCIUM
  8. AMBRISENTAN [Suspect]
     Active Substance: AMBRISENTAN
     Indication: PRODUCT USED FOR UNKNOWN INDICATION
     Dosage: 10 MG, QD
     Route: 065
     Dates: start: 20130418
  9. ALBUTEROL. [Concomitant]
     Active Substance: ALBUTEROL
  10. NIFEDIPINE. [Concomitant]
     Active Substance: NIFEDIPINE
  11. CELEXA [Concomitant]
     Active Substance: CITALOPRAM HYDROBROMIDE
  12. SINGULAIR [Concomitant]
     Active Substance: MONTELUKAST SODIUM
  13. SILDENAFIL. [Concomitant]
     Active Substance: SILDENAFIL
  14. LASIX [Concomitant]
     Active Substance: FUROSEMIDE
  15. TRICOR [Concomitant]
     Active Substance: FENOFIBRATE
  16. GLIPIZIDE. [Concomitant]
     Active Substance: GLIPIZIDE
  17. SPIRONOLACTONE. [Concomitant]
     Active Substance: SPIRONOLACTONE
  18. PROTONIX [Concomitant]
     Active Substance: PANTOPRAZOLE SODIUM
  19. METFORMIN [Concomitant]
     Active Substance: METFORMIN HYDROCHLORIDE

REACTIONS (7)
  - Back pain [Unknown]
  - Arthralgia [Unknown]
  - Musculoskeletal pain [Unknown]
  - Headache [Unknown]
  - Pain in jaw [Unknown]
  - Myalgia [Unknown]
  - Anxiety [Unknown]
